FAERS Safety Report 13585946 (Version 2)
Quarter: 2018Q4

REPORT INFORMATION
  Report Type: Report from Study
  Country: US (occurrence: US)
  Receive Date: 20170526
  Receipt Date: 20181115
  Transmission Date: 20190204
  Serious: No
  Sender: FDA-Public Use
  Company Number: US-SA-2017SA087855

PATIENT
  Age: 74 Year
  Sex: Female

DRUGS (1)
  1. ELIGLUSTAT. [Suspect]
     Active Substance: ELIGLUSTAT
     Indication: GAUCHER^S DISEASE
     Dosage: 84 MG, BID
     Route: 048
     Dates: start: 20141027

REACTIONS (2)
  - Peripheral swelling [Not Recovered/Not Resolved]
  - Gastrointestinal disorder [Unknown]
